FAERS Safety Report 25161988 (Version 2)
Quarter: 2025Q2

REPORT INFORMATION
  Report Type: Report from Study
  Country: CA (occurrence: CA)
  Receive Date: 20250404
  Receipt Date: 20250506
  Transmission Date: 20250716
  Serious: Yes (Other)
  Sender: TAKEDA
  Company Number: CA-TAKEDA-2025TUS033192

PATIENT
  Age: 65 Year
  Sex: Female

DRUGS (6)
  1. VEDOLIZUMAB [Suspect]
     Active Substance: VEDOLIZUMAB
     Indication: Crohn^s disease
  2. VEDOLIZUMAB [Suspect]
     Active Substance: VEDOLIZUMAB
     Dosage: 300 MILLIGRAM, Q4WEEKS
     Dates: start: 20231211
  3. METHOTREXATE [Concomitant]
     Active Substance: METHOTREXATE
  4. RABEPRAZOLE [Concomitant]
     Active Substance: RABEPRAZOLE
  5. FOLIC ACID [Concomitant]
     Active Substance: FOLIC ACID
  6. VITAMIN D [Concomitant]
     Active Substance: VITAMIN D NOS

REACTIONS (2)
  - Breast mass [Unknown]
  - Off label use [Unknown]

NARRATIVE: CASE EVENT DATE: 20231211
